FAERS Safety Report 10049476 (Version 1)
Quarter: 2014Q2

REPORT INFORMATION
  Report Type: Spontaneous
  Country: US (occurrence: US)
  Receive Date: 20140401
  Receipt Date: 20140401
  Transmission Date: 20141212
  Serious: No
  Sender: FDA-Public Use
  Company Number: US-BAYER-2014-037091

PATIENT
  Age: 55 Year
  Sex: Female
  Weight: 54.42 kg

DRUGS (8)
  1. AVELOX [Suspect]
     Indication: SINUSITIS
     Dosage: 400 MG, UNK
     Route: 048
     Dates: start: 20140305, end: 20140305
  2. CRESTOR [Concomitant]
     Indication: BLOOD CHOLESTEROL INCREASED
     Dosage: 10 MG, QD
     Route: 048
     Dates: start: 201203
  3. VITAMIN D2 [Concomitant]
     Indication: VITAMIN D DEFICIENCY
     Dosage: 1.25 MG, OW
     Route: 048
     Dates: start: 201401
  4. SUMATRIPTAN [Concomitant]
     Indication: MIGRAINE
     Dosage: 100 MG, Q2HR
     Dates: start: 199903
  5. ESCITALOPRAM [Concomitant]
     Indication: DEPRESSION
     Dosage: 10 MG, QD
     Route: 048
     Dates: start: 200903
  6. ESCITALOPRAM [Concomitant]
     Indication: NIGHT SWEATS
  7. ALENDRONATE SODIUM [Concomitant]
     Indication: OSTEOPOROSIS
     Dosage: 70 MG, OW
     Route: 048
     Dates: start: 201402
  8. ALENDRONATE SODIUM [Concomitant]
     Indication: OSTEOPENIA

REACTIONS (3)
  - Hypersensitivity [Recovering/Resolving]
  - Face oedema [Recovering/Resolving]
  - Swelling face [Recovering/Resolving]
